FAERS Safety Report 17589423 (Version 2)
Quarter: 2021Q2

REPORT INFORMATION
  Report Type: Spontaneous
  Country: US (occurrence: US)
  Receive Date: 20200327
  Receipt Date: 20210413
  Transmission Date: 20210716
  Serious: No
  Sender: FDA-Public Use
  Company Number: US-ALLERGAN-1938953US

PATIENT
  Age: 69 Year
  Sex: Female

DRUGS (5)
  1. LATISSE [Suspect]
     Active Substance: BIMATOPROST
     Dosage: EVERY 3 TO 4 DAYS
     Route: 061
     Dates: start: 2019
  2. RESTASIS [Concomitant]
     Active Substance: CYCLOSPORINE
     Indication: DRY EYE
     Dosage: 2 GTT, BID
     Route: 047
  3. PERMANENT EYELINER [Concomitant]
  4. LATISSE [Suspect]
     Active Substance: BIMATOPROST
     Indication: GROWTH OF EYELASHES
     Dosage: UNK UNK, Q WEEK
     Route: 061
     Dates: start: 20190913
  5. LATISSE [Suspect]
     Active Substance: BIMATOPROST
     Dosage: UNK UNK, QHS
     Route: 061
     Dates: start: 20190826

REACTIONS (6)
  - Hypersensitivity [Unknown]
  - Pruritus [Unknown]
  - Inappropriate schedule of product administration [Unknown]
  - Eyelid thickening [Unknown]
  - Eyelid irritation [Unknown]
  - Erythema [Unknown]

NARRATIVE: CASE EVENT DATE: 201908
